FAERS Safety Report 7430636-5 (Version None)
Quarter: 2011Q2

REPORT INFORMATION
  Report Type: 
  Country: None (occurrence: None)
  Receive Date: 20110421
  Receipt Date: 20110216
  Transmission Date: 20111010
  Serious: No
  Sender: FDA-Public Use
  Company Number: US-ASTRAZENECA-2011SE09221

PATIENT
  Age: 71 Year
  Sex: Female

DRUGS (3)
  1. TOPROL-XL [Suspect]
     Route: 048
  2. TOPROL-XL [Suspect]
     Dosage: DOUBLE UP ON HER TOPROL XL
     Route: 048
  3. CRESTOR [Suspect]
     Route: 048

REACTIONS (1)
  - HYPERTENSION [None]
